FAERS Safety Report 24210176 (Version 1)
Quarter: 2024Q3

REPORT INFORMATION
  Report Type: Spontaneous
  Country: PT (occurrence: PT)
  Receive Date: 20240814
  Receipt Date: 20240814
  Transmission Date: 20241017
  Serious: Yes (Death)
  Sender: GILEAD
  Company Number: None

PATIENT
  Age: 93 Year
  Sex: Female

DRUGS (17)
  1. VEKLURY [Suspect]
     Active Substance: REMDESIVIR
     Indication: COVID-19
     Dosage: 200 MG
     Route: 042
     Dates: start: 20220127, end: 20220127
  2. VEKLURY [Suspect]
     Active Substance: REMDESIVIR
     Dosage: 200MG PRIMEIRA TOMA; 100MG NAS RESTANTES 4 TOMAS
     Route: 042
     Dates: start: 20220128, end: 20220131
  3. INSULIN HUMAN [Concomitant]
     Active Substance: INSULIN HUMAN
  4. ACETAMINOPHEN [Concomitant]
     Active Substance: ACETAMINOPHEN
  5. OXIGENO [Concomitant]
  6. CARVEDILOL [Concomitant]
     Active Substance: CARVEDILOL
  7. DEXAMETHASONE [Concomitant]
     Active Substance: DEXAMETHASONE
  8. PANTOPRAZOLE [Concomitant]
     Active Substance: PANTOPRAZOLE
  9. SULFATO FERROSO [Concomitant]
  10. LORAZEPAM [Concomitant]
     Active Substance: LORAZEPAM
  11. CLORETO DE SODIO [Concomitant]
  12. ENOXAPARIN SODIUM [Concomitant]
     Active Substance: ENOXAPARIN SODIUM
  13. AMLODIPINE BESYLATE [Concomitant]
     Active Substance: AMLODIPINE BESYLATE
  14. FUROSEMIDE [Concomitant]
     Active Substance: FUROSEMIDE
  15. BROMETO DE IPRATROPIO [Concomitant]
  16. FOLIC ACID [Concomitant]
     Active Substance: FOLIC ACID
  17. MORPHINE [Concomitant]
     Active Substance: MORPHINE

REACTIONS (1)
  - Drug ineffective [Fatal]

NARRATIVE: CASE EVENT DATE: 20220131
